FAERS Safety Report 10036122 (Version 1)
Quarter: 2014Q1

REPORT INFORMATION
  Report Type: Spontaneous
  Country: PR (occurrence: None)
  Receive Date: 20140306
  Receipt Date: 20140306
  Transmission Date: 20141002
  Serious: Yes (Other)
  Sender: FDA-Public Use
  Company Number: 163-21880-12080450

PATIENT
  Age: 76 Year
  Sex: Female
  Weight: 56.25 kg

DRUGS (10)
  1. REVLIMID (LENALIDOMIDE) (CAPSULES) [Suspect]
     Indication: PLASMA CELL MYELOMA
     Route: 048
     Dates: start: 20120113
  2. HYZAAR (HYZAAR) [Concomitant]
  3. NORVASC (AMLODIPINE BESILATE) [Concomitant]
  4. ATENOLOL (ATENOLOL) [Concomitant]
  5. GLUCOPHAGE (METFORMIN HYDROCHLORIDE) [Concomitant]
  6. MULTIVITAMINS (MULTIVITAMINS) [Concomitant]
  7. VITAMIN B12 (CYANOCOBALAMIN) [Concomitant]
  8. ZANTAC (RANITIDINE HYDROCHLORIDE) [Concomitant]
  9. TRAMADOL (TRAMADOL) [Concomitant]
  10. HYDROCODONE (HYDROCODONE) [Concomitant]

REACTIONS (7)
  - Lumbar vertebral fracture [None]
  - Fall [None]
  - Haemoglobin decreased [None]
  - Nausea [None]
  - Vomiting [None]
  - Diarrhoea [None]
  - Back pain [None]
